FAERS Safety Report 18013160 (Version 1)
Quarter: 2020Q3

REPORT INFORMATION
  Report Type: Spontaneous
  Country: US (occurrence: US)
  Receive Date: 20200713
  Receipt Date: 20200713
  Transmission Date: 20201103
  Serious: No
  Sender: FDA-Public Use
  Company Number: US-PFIZER INC-2020266134

PATIENT
  Age: 51 Year
  Sex: Female

DRUGS (7)
  1. ANAFRANIL [Suspect]
     Active Substance: CLOMIPRAMINE HYDROCHLORIDE
     Dosage: UNK
  2. PAXIL [Suspect]
     Active Substance: PAROXETINE HYDROCHLORIDE
     Dosage: UNK
  3. RISPERIDONE. [Suspect]
     Active Substance: RISPERIDONE
     Dosage: UNK
  4. LUVOX [Suspect]
     Active Substance: FLUVOXAMINE MALEATE
     Dosage: UNK
  5. IMIPRAMINE [Suspect]
     Active Substance: IMIPRAMINE
     Dosage: UNK
  6. EFFEXOR XR [Suspect]
     Active Substance: VENLAFAXINE HYDROCHLORIDE
     Dosage: UNK
  7. ELAVIL [ALLOPURINOL] [Suspect]
     Active Substance: ALLOPURINOL
     Dosage: UNK

REACTIONS (1)
  - Drug ineffective [Unknown]
